FAERS Safety Report 7691206-7 (Version None)
Quarter: 2011Q3

REPORT INFORMATION
  Report Type: 
  Country: None (occurrence: None)
  Receive Date: 20110818
  Receipt Date: 20110808
  Transmission Date: 20111222
  Serious: Yes (Other)
  Sender: FDA-Public Use
  Company Number: CA-JNJFOC-20110806125

PATIENT
  Sex: Male

DRUGS (4)
  1. REMICADE [Suspect]
     Route: 042
     Dates: start: 20110808
  2. BENADRYL [Suspect]
     Indication: PREMEDICATION
     Dates: start: 20110808
  3. REMICADE [Suspect]
     Indication: CROHN'S DISEASE
     Route: 042
     Dates: start: 20100801
  4. BENADRYL [Suspect]

REACTIONS (2)
  - ABSCESS [None]
  - FEELING ABNORMAL [None]
